FAERS Safety Report 6260137-1 (Version None)
Quarter: 2009Q3

REPORT INFORMATION
  Report Type: 
  Country: None (occurrence: None)
  Receive Date: 20090708
  Receipt Date: 20090630
  Transmission Date: 20100115
  Serious: Yes (Other)
  Sender: FDA-Public Use
  Company Number: A0681549A

PATIENT
  Age: 31 Year
  Sex: Female

DRUGS (6)
  1. PAXIL [Suspect]
     Indication: DRUG USE FOR UNKNOWN INDICATION
     Dosage: 20MG PER DAY
     Route: 048
  2. LAMICTAL [Concomitant]
     Dosage: 300MG PER DAY
     Route: 048
  3. FOLIC ACID [Concomitant]
  4. FIORICET [Concomitant]
  5. BENTYL [Concomitant]
  6. NAPROSYN [Concomitant]

REACTIONS (2)
  - ABORTION MISSED [None]
  - DRUG EXPOSURE DURING PREGNANCY [None]
